FAERS Safety Report 8398010-5 (Version None)
Quarter: 2012Q2

REPORT INFORMATION
  Report Type: 
  Country: None (occurrence: None)
  Receive Date: 20120531
  Receipt Date: 20120523
  Transmission Date: 20120825
  Serious: Yes (Other)
  Sender: FDA-Public Use
  Company Number: TR-ASTELLAS-2012EU003839

PATIENT
  Age: 25 Year
  Sex: Female

DRUGS (2)
  1. SIROLIMUS [Suspect]
     Indication: LIVER TRANSPLANT
     Dosage: 1 MG, UNKNOWN/D
     Route: 065
  2. TACROLIMUS [Suspect]
     Indication: LIVER TRANSPLANT
     Dosage: 2 MG, UNKNOWN/D
     Route: 065

REACTIONS (3)
  - PREMATURE DELIVERY [None]
  - HYPERCALCAEMIA [None]
  - MATERNAL EXPOSURE DURING PREGNANCY [None]
